FAERS Safety Report 16182412 (Version 1)
Quarter: 2019Q2

REPORT INFORMATION
  Report Type: Spontaneous
  Country: US (occurrence: US)
  Receive Date: 20190411
  Receipt Date: 20190411
  Transmission Date: 20190711
  Serious: No
  Sender: FDA-Public Use
  Company Number: US-009507513-1904USA004315

PATIENT
  Sex: Female

DRUGS (1)
  1. NEXPLANON [Suspect]
     Active Substance: ETONOGESTREL
     Indication: CONTRACEPTION
     Dosage: FREQUENCY: ONE TIME
     Route: 059
     Dates: start: 201805

REACTIONS (3)
  - Menorrhagia [Unknown]
  - Mood swings [Unknown]
  - Rash [Unknown]

NARRATIVE: CASE EVENT DATE: 2018
